FAERS Safety Report 14397546 (Version 1)
Quarter: 2018Q1

REPORT INFORMATION
  Report Type: Spontaneous
  Country: US (occurrence: US)
  Receive Date: 20180116
  Receipt Date: 20180116
  Transmission Date: 20180509
  Serious: No
  Sender: FDA-Public Use
  Company Number: US-ALLERGAN-1728602US

PATIENT
  Sex: Female

DRUGS (3)
  1. JUVEDERM [Concomitant]
     Active Substance: HYALURONIC ACID
  2. JUVEDERM VOLUMA XC [Concomitant]
     Active Substance: HYALURONIC ACID\LIDOCAINE HYDROCHLORIDE
  3. BOTOX COSMETIC [Suspect]
     Active Substance: ONABOTULINUMTOXINA
     Indication: PRODUCT USED FOR UNKNOWN INDICATION
     Dosage: UNK, SINGLE
     Route: 030

REACTIONS (1)
  - Hyperaesthesia [Unknown]
